FAERS Safety Report 5832307-5 (Version None)
Quarter: 2008Q3

REPORT INFORMATION
  Report Type: 
  Country: None (occurrence: None)
  Receive Date: 20080731
  Receipt Date: 20080731
  Transmission Date: 20090109
  Serious: Yes (Hospitalization, Other)
  Sender: FDA-Public Use
  Company Number: None

PATIENT
  Sex: Female
  Weight: 75.2971 kg

DRUGS (13)
  1. LETAIRIS [Suspect]
     Indication: PULMONARY HYPERTENSION
     Dosage: 5MG DAILY PO
     Route: 048
     Dates: start: 20071012, end: 20071014
  2. CAPTOPRIL [Concomitant]
  3. MAG-OXIDE [Concomitant]
  4. BUMETANIDE [Concomitant]
  5. ESOMEPRAZOLE [Concomitant]
  6. LANTUS [Concomitant]
  7. ROSUVASTATIN CALCIUM [Concomitant]
  8. METOLAZONE [Concomitant]
  9. CITALOPRAM HYDROBROMIDE [Concomitant]
  10. ERYTHROPOETIN [Concomitant]
  11. DIPHENOXALATE/ATROPINE [Concomitant]
  12. FOLIC ACID [Concomitant]
  13. CYANOCOBALAMIN [Concomitant]

REACTIONS (8)
  - ABDOMINAL DISTENSION [None]
  - BLOOD CREATININE INCREASED [None]
  - BLOOD PRESSURE DECREASED [None]
  - FLUID OVERLOAD [None]
  - HAEMODYNAMIC INSTABILITY [None]
  - OLIGURIA [None]
  - RENAL FAILURE ACUTE [None]
  - RENAL TUBULAR NECROSIS [None]
